FAERS Safety Report 18241746 (Version 1)
Quarter: 2020Q3

REPORT INFORMATION
  Report Type: Spontaneous
  Country: US (occurrence: US)
  Receive Date: 20200907
  Receipt Date: 20200907
  Transmission Date: 20201103
  Serious: Yes (Hospitalization)
  Sender: FDA-Public Use
  Company Number: None

PATIENT
  Age: 52 Year
  Sex: Male
  Weight: 95.7 kg

DRUGS (5)
  1. MELATONIN 5MG QHS [Concomitant]
     Dates: start: 20200514, end: 20200828
  2. HALOPERIDOL 20MG BID [Concomitant]
     Dates: start: 20200515, end: 20200828
  3. VALPROIC ACID SOLUTION [Suspect]
     Active Substance: VALPROIC ACID
     Indication: SCHIZOAFFECTIVE DISORDER BIPOLAR TYPE
     Route: 048
     Dates: start: 20200227, end: 20200828
  4. POLYETHYLENE GLYCOL 1PKT QD [Concomitant]
     Dates: start: 20200514, end: 20200828
  5. CLOZAPINE TABLET [Suspect]
     Active Substance: CLOZAPINE
     Indication: SCHIZOAFFECTIVE DISORDER BIPOLAR TYPE
     Route: 048
     Dates: start: 20200529, end: 20200826

REACTIONS (8)
  - Oropharyngeal pain [None]
  - Anaemia [None]
  - Blood creatine phosphokinase increased [None]
  - Headache [None]
  - Injection site phlebitis [None]
  - SARS-CoV-2 antibody test negative [None]
  - Tachycardia [None]
  - Febrile neutropenia [None]

NARRATIVE: CASE EVENT DATE: 20200825
